FAERS Safety Report 4705727-X (Version None)
Quarter: 2005Q2

REPORT INFORMATION
  Report Type: 
  Country: None (occurrence: None)
  Receive Date: 20050629
  Receipt Date: 20050615
  Transmission Date: 20051028
  Serious: Yes (Hospitalization)
  Sender: FDA-Public Use
  Company Number: 2005-BP-10433RO

PATIENT
  Age: 74 Year
  Sex: Female

DRUGS (11)
  1. LITHIUM CARBONATE [Suspect]
     Indication: BIPOLAR DISORDER
     Dosage: 250 MG TID, PO
     Route: 048
  2. ESCITALOPRAM OXALATE [Suspect]
     Dosage: 10 MG/DAY, PO
     Route: 048
  3. LEVOMEPROMAZINE (LEVOMEPROMAZINE) [Suspect]
     Dosage: 6.25 MG/DAY, PO
     Route: 048
  4. LISINOPRIL [Suspect]
     Dosage: 30 MG/DAY
  5. IRBESARTAN [Suspect]
     Indication: HYPERTENSION
     Dosage: 300 MG/DAY
  6. FUROSEMIDE [Suspect]
     Dosage: 30 MG/DAY
  7. SPIRONOLACTONE [Suspect]
     Dosage: 50 MG/DAY
  8. RISPERIDONE [Suspect]
     Dosage: 0.25 MG BID (2 IN 1 D)
  9. LORMETAZEPAM (LORMETAZEPAM) [Concomitant]
  10. METFORMIN (METFORMIN) [Concomitant]
  11. RAPAGLINIDE (REPAGLINIDE) [Concomitant]

REACTIONS (13)
  - AGITATION [None]
  - APATHY [None]
  - BLOOD CREATININE INCREASED [None]
  - CONFUSIONAL STATE [None]
  - DEHYDRATION [None]
  - DIARRHOEA [None]
  - DRUG INTERACTION [None]
  - DYSARTHRIA [None]
  - LETHARGY [None]
  - OLIGURIA [None]
  - SOMNOLENCE [None]
  - THERAPEUTIC AGENT TOXICITY [None]
  - TREMOR [None]
